FAERS Safety Report 9817766 (Version 1)
Quarter: 2013Q4

REPORT INFORMATION
  Report Type: Spontaneous
  Country: US (occurrence: None)
  Receive Date: 20131224
  Receipt Date: 20131224
  Transmission Date: 20140711
  Serious: Yes (Other)
  Sender: FDA-Public Use
  Company Number: PHEH2013US019846

PATIENT
  Age: 43 Year
  Sex: Female
  Weight: 72.6 kg

DRUGS (3)
  1. GILENYA [Suspect]
     Indication: MULTIPLE SCLEROSIS
     Route: 048
  2. AMPYRA [Suspect]
     Route: 048
     Dates: start: 20130812
  3. VITAMIN D (ERGOCALCIFEROL) [Suspect]

REACTIONS (4)
  - Abdominal pain upper [None]
  - Nausea [None]
  - Dyspepsia [None]
  - Headache [None]
